FAERS Safety Report 9921019 (Version 2)
Quarter: 2014Q1

REPORT INFORMATION
  Report Type: Spontaneous
  Country: FR (occurrence: FR)
  Receive Date: 20140225
  Receipt Date: 20140328
  Transmission Date: 20141002
  Serious: Yes (Hospitalization)
  Sender: FDA-Public Use
  Company Number: FR-ROCHE-1354896

PATIENT
  Age: 93 Year
  Sex: Female

DRUGS (1)
  1. LUCENTIS [Suspect]
     Indication: AGE-RELATED MACULAR DEGENERATION
     Dosage: THE LAST DOSE WAS RCEIVEED ON 24/DEC/2013.
     Route: 050
     Dates: start: 2008

REACTIONS (1)
  - Cerebrovascular accident [Not Recovered/Not Resolved]
